FAERS Safety Report 18211389 (Version 2)
Quarter: 2020Q3

REPORT INFORMATION
  Report Type: Spontaneous
  Country: FR (occurrence: FR)
  Receive Date: 20200831
  Receipt Date: 20200923
  Transmission Date: 20201103
  Serious: Yes (Hospitalization)
  Sender: FDA-Public Use
  Company Number: FR-TEVA-2020-FR-1820946

PATIENT
  Age: 87 Year
  Sex: Male
  Weight: 76 kg

DRUGS (10)
  1. ONDANSETRON [Suspect]
     Active Substance: ONDANSETRON
     Indication: PREMEDICATION
     Dosage: 8 MG
     Route: 048
     Dates: start: 20200727, end: 20200727
  2. ALLOPURINOL. [Concomitant]
     Active Substance: ALLOPURINOL
     Dosage: UNKNOWN
     Route: 048
  3. PREDNISOLONE. [Suspect]
     Active Substance: PREDNISOLONE
     Indication: ADENOCARCINOMA GASTRIC
     Dosage: 40 MG
     Route: 048
     Dates: start: 20200727, end: 20200727
  4. CARBOPLATINE [Suspect]
     Active Substance: CARBOPLATIN
     Indication: ADENOCARCINOMA GASTRIC
     Dosage: 280 MG
     Route: 042
     Dates: start: 20200727, end: 20200727
  5. PRIMALAN [Concomitant]
     Active Substance: MEQUITAZINE
     Dosage: UNKNOWN
     Route: 048
  6. NERISONE [Concomitant]
     Active Substance: DIFLUCORTOLONE VALERATE
     Dosage: UNKNOWN
     Route: 003
  7. MACROGOL (STEARATE DE) [Concomitant]
     Active Substance: POLYETHYLENE GLYCOLS
     Dosage: UNKNOWN
     Route: 048
  8. SERETIDE [Concomitant]
     Active Substance: FLUTICASONE PROPIONATE\SALMETEROL XINAFOATE
     Dosage: 150 MICROGRAM
     Route: 055
  9. DAFALGAN 1 G, COMPRIME PELLICULE [Concomitant]
     Dosage: UNIT DOSE: 3 DOSAGE FORMS
     Route: 048
  10. EMEND [Suspect]
     Active Substance: APREPITANT
     Indication: PROPHYLAXIS OF NAUSEA AND VOMITING
     Dosage: 1 DOSAGE FORMS
     Route: 048
     Dates: start: 20200727, end: 20200727

REACTIONS (1)
  - Anaphylactic reaction [Recovered/Resolved]

NARRATIVE: CASE EVENT DATE: 20200727
